FAERS Safety Report 6428885-8 (Version None)
Quarter: 2009Q4

REPORT INFORMATION
  Report Type: 
  Country: None (occurrence: None)
  Receive Date: 20091105
  Receipt Date: 20091028
  Transmission Date: 20100525
  Serious: Yes (Hospitalization)
  Sender: FDA-Public Use
  Company Number: JP-ROCHE-665619

PATIENT
  Age: 82 Year
  Sex: Female

DRUGS (3)
  1. DORMICUM (INJ) [Suspect]
     Indication: DRUG USE FOR UNKNOWN INDICATION
     Route: 065
  2. AMPICILLIN SODIUM [Suspect]
     Indication: DRUG USE FOR UNKNOWN INDICATION
     Dosage: DRUG NAME: VICILLIN
     Route: 041
  3. AMPICILLIN SODIUM/SULBACTAM SODIUM [Suspect]
     Indication: DRUG USE FOR UNKNOWN INDICATION
     Dosage: DRUG NAM: PICILLIBACTA
     Route: 041

REACTIONS (1)
  - LIVER DISORDER [None]
